FAERS Safety Report 5288212-9 (Version None)
Quarter: 2007Q2

REPORT INFORMATION
  Report Type: 
  Country: None (occurrence: None)
  Receive Date: 20070402
  Receipt Date: 20070402
  Transmission Date: 20071010
  Serious: Yes (Hospitalization)
  Sender: FDA-Public Use
  Company Number: None

PATIENT
  Sex: Male

DRUGS (2)
  1. CETUXIMAB [Suspect]
     Dosage: 543 MG IV / WEEKLY
     Route: 042
     Dates: start: 20070319
  2. CARBOPLATIN [Suspect]
     Dosage: 1114 MG IV / WEEKLY
     Route: 042
     Dates: start: 20070319

REACTIONS (3)
  - ABDOMINAL PAIN [None]
  - ANOREXIA [None]
  - DIARRHOEA [None]
